FAERS Safety Report 5711038-6 (Version None)
Quarter: 2008Q2

REPORT INFORMATION
  Report Type: 
  Country: None (occurrence: None)
  Receive Date: 20080415
  Receipt Date: 20080403
  Transmission Date: 20081010
  Serious: Yes (Hospitalization)
  Sender: FDA-Public Use
  Company Number: GXKR2008NL03318

PATIENT
  Age: 60 Year
  Sex: Male

DRUGS (6)
  1. AMOXICILLIN + CLAVULANATE POTASSIUM [Suspect]
     Dosage: 500/125 MG, QID, ORAL
     Route: 048
     Dates: start: 20080308, end: 20080321
  2. SERETIDE (FLUTICASONE PROPIONATE, SALMETEROL XINAFOATE) [Concomitant]
  3. SPIRIVA [Concomitant]
  4. PAROXETINE HCL [Concomitant]
  5. LEVEMIR (INSULIN DETEMIR) [Concomitant]
  6. INSULATARD NPH HUMAN [Concomitant]

REACTIONS (3)
  - DYSPNOEA [None]
  - HYPERVENTILATION [None]
  - NIGHTMARE [None]
